FAERS Safety Report 20982973 (Version 5)
Quarter: 2022Q4

REPORT INFORMATION
  Report Type: Report from Study
  Country: JP (occurrence: JP)
  Receive Date: 20220620
  Receipt Date: 20221109
  Transmission Date: 20230112
  Serious: Yes (Hospitalization)
  Sender: FDA-Public Use
  Company Number: JP-GLAXOSMITHKLINE-JP2022GSK092112

PATIENT

DRUGS (26)
  1. BELANTAMAB MAFODOTIN [Suspect]
     Active Substance: BELANTAMAB MAFODOTIN
     Indication: Plasma cell myeloma refractory
     Dosage: 2.5 MG/KG, Q4W (DAY 1 OF 28 DAY CYCLE)
     Route: 042
     Dates: start: 20220531, end: 20220531
  2. BELANTAMAB MAFODOTIN [Suspect]
     Active Substance: BELANTAMAB MAFODOTIN
     Dosage: 1.90 MG/KG
     Route: 042
     Dates: start: 20210628, end: 20210628
  3. BELANTAMAB MAFODOTIN [Suspect]
     Active Substance: BELANTAMAB MAFODOTIN
     Dosage: 1.90 UNK
     Route: 042
     Dates: start: 20220920, end: 20220920
  4. POMALIDOMIDE [Suspect]
     Active Substance: POMALIDOMIDE
     Indication: Plasma cell myeloma refractory
     Dosage: 4 MG (DAYS 1-21 OD 28 DAY CYCLE)
     Route: 048
     Dates: start: 20220531, end: 20220620
  5. POMALIDOMIDE [Suspect]
     Active Substance: POMALIDOMIDE
     Dosage: 3 MG
     Route: 048
     Dates: start: 20220628, end: 20220718
  6. POMALIDOMIDE [Suspect]
     Active Substance: POMALIDOMIDE
     Dosage: 1 MG (DAYS 1-21 OD 28 DAY CYCLE)
     Route: 048
     Dates: start: 20221018
  7. DEXAMETHASONE [Suspect]
     Active Substance: DEXAMETHASONE
     Indication: Plasma cell myeloma refractory
     Dosage: 40 MG (DAYS 1,8,15 AND 22 OF 28 DAY CYCLE)
     Dates: start: 20220531, end: 20220614
  8. DEXAMETHASONE [Suspect]
     Active Substance: DEXAMETHASONE
     Dosage: 20 MG (DAY 22)
     Route: 048
     Dates: start: 20220621
  9. DEXAMETHASONE [Suspect]
     Active Substance: DEXAMETHASONE
     Dosage: 20 MG
     Route: 048
     Dates: start: 20220628, end: 20220719
  10. DEXAMETHASONE [Suspect]
     Active Substance: DEXAMETHASONE
     Dosage: 20 MG
     Route: 048
     Dates: start: 20221018
  11. VALSARTAN [Concomitant]
     Active Substance: VALSARTAN
     Indication: Hypertension
     Dosage: 160 MG, QD
     Route: 048
     Dates: start: 2000
  12. POTASSIUM ASPARTATE ANHYDROUS [Concomitant]
     Active Substance: POTASSIUM ASPARTATE ANHYDROUS
     Indication: Blood potassium decreased
     Dosage: 10.8 MEQ/DAY
     Route: 048
     Dates: start: 20181106
  13. ONETRAM TABLETS [Concomitant]
     Indication: Neuropathy peripheral
     Dosage: 200 MG/DAY, QD
     Route: 048
     Dates: start: 20180427
  14. AMLODIPINE BESYLATE [Concomitant]
     Active Substance: AMLODIPINE BESYLATE
     Indication: Hypertension
     Dosage: 5 MG/DAY, QD
     Route: 048
     Dates: start: 20190604
  15. CYMBALTA [Concomitant]
     Active Substance: DULOXETINE HYDROCHLORIDE
     Indication: Neuropathy peripheral
     Dosage: 20MG/DAY, QD
     Route: 048
     Dates: start: 20180403
  16. ATORVASTATIN CALCIUM [Concomitant]
     Active Substance: ATORVASTATIN CALCIUM
     Indication: Hyperlipidaemia
     Dosage: 5 MG/DAY, QD
     Route: 048
     Dates: start: 2000, end: 20220614
  17. MIYA-BM [Concomitant]
     Active Substance: CLOSTRIDIUM BUTYRICUM SPORES STRAIN M-55
     Indication: Diarrhoea
     Dosage: 3 G, TID
     Route: 048
     Dates: start: 20180601, end: 20220606
  18. MIYA-BM [Concomitant]
     Active Substance: CLOSTRIDIUM BUTYRICUM SPORES STRAIN M-55
     Dosage: 6 TABLET
     Route: 048
     Dates: start: 20220607
  19. VONOPRAZAN FUMARATE [Concomitant]
     Active Substance: VONOPRAZAN FUMARATE
     Indication: Abdominal pain upper
     Dosage: 20 MG/DAY, QD
     Route: 048
     Dates: start: 20181024
  20. ASPIRIN [Concomitant]
     Active Substance: ASPIRIN
     Indication: Thrombosis prophylaxis
     Dosage: 100 MG/DAY, QD
     Route: 048
     Dates: start: 20180213, end: 20220607
  21. CALCIUM CHLORIDE\POTASSIUM CHLORIDE\SODIUM ACETATE\SODIUM CHLORIDE [Concomitant]
     Active Substance: CALCIUM CHLORIDE\POTASSIUM CHLORIDE\SODIUM ACETATE\SODIUM CHLORIDE
     Indication: Cholecystitis
     Dosage: 500 ML, QD
     Route: 042
     Dates: start: 20220612, end: 20220618
  22. WYSTAL FOR COMBINATION INTRAVENOUS [Concomitant]
     Indication: Cholecystitis
     Dosage: 1 G, BID
     Route: 042
     Dates: start: 20220612, end: 20220618
  23. B-FLUID [Concomitant]
     Indication: Cholecystitis
     Dosage: 500 ML, QD
     Route: 042
     Dates: start: 20220612, end: 20220612
  24. B-FLUID [Concomitant]
     Dosage: 500 ML, BID
     Route: 042
     Dates: start: 20220613, end: 20220614
  25. CHLORPHENIRAMINE MALEATE [Concomitant]
     Active Substance: CHLORPHENIRAMINE MALEATE
     Indication: Platelet count decreased
     Dosage: 5 MG, QD
     Route: 042
     Dates: start: 20220614, end: 20220614
  26. SODIUM CHLORIDE [Concomitant]
     Active Substance: SODIUM CHLORIDE
     Indication: Platelet count decreased
     Dosage: 50 ML, QD
     Route: 042
     Dates: start: 20220614, end: 20220614

REACTIONS (1)
  - Cholecystitis [Recovered/Resolved]

NARRATIVE: CASE EVENT DATE: 20220612
